FAERS Safety Report 4874790-8 (Version None)
Quarter: 2006Q1

REPORT INFORMATION
  Report Type: 
  Country: None (occurrence: None)
  Receive Date: 20060104
  Receipt Date: 20051219
  Transmission Date: 20060701
  Serious: Yes (Death, Life-Threatening, Hospitalization, Other)
  Sender: FDA-Public Use
  Company Number: 2005167236

PATIENT
  Age: 73 Year
  Sex: Male

DRUGS (6)
  1. ZYRTEC [Suspect]
     Indication: PRURITUS
     Dosage: 10 MG (10 MG, 1 IN 1 D) ORAL
     Route: 048
     Dates: start: 20050106, end: 20051130
  2. ARICEPT [Suspect]
     Indication: DEMENTIA ALZHEIMER'S TYPE
     Dosage: 5 MG (1 IN 1 D) ORAL
     Route: 048
     Dates: start: 20040812, end: 20051130
  3. FAMOTIDINE [Suspect]
     Indication: GASTRITIS
     Dosage: 20 MG (20 MG, 1 IN 1 D) ORAL
     Route: 048
     Dates: start: 20041115, end: 20051130
  4. CORINAEL (NIFEDIPINE) [Concomitant]
  5. HERBESSER B (DILTIAZEM HYDROCHLORIDE) [Concomitant]
  6. CALCIUM CARBONATE (CALCIUM CARBONATE) [Concomitant]

REACTIONS (6)
  - BLOOD PRESSURE DECREASED [None]
  - BRADYCARDIA [None]
  - COAGULOPATHY [None]
  - HAEMODIALYSIS [None]
  - HYPERKALAEMIA [None]
  - SICK SINUS SYNDROME [None]
